FAERS Safety Report 25830900 (Version 4)
Quarter: 2025Q4

REPORT INFORMATION
  Report Type: Report from Study
  Country: US (occurrence: US)
  Receive Date: 20250922
  Receipt Date: 20251216
  Transmission Date: 20260118
  Serious: Yes (Other)
  Sender: ACADIA PHARMACEUTICALS
  Company Number: US-ACADIA PHARMACEUTICALS INC.-ACA-2025-PIM-010450

PATIENT
  Sex: Male

DRUGS (2)
  1. NUPLAZID [Suspect]
     Active Substance: PIMAVANSERIN TARTRATE
     Indication: Parkinson^s disease psychosis
     Dosage: 34 MILLIGRAM, ONCE A DAY
     Route: 048
     Dates: start: 20250812
  2. CARBIDOPA\LEVODOPA [Concomitant]
     Active Substance: CARBIDOPA\LEVODOPA
     Indication: Tremor

REACTIONS (5)
  - Hallucination, visual [Recovering/Resolving]
  - Tremor [Recovering/Resolving]
  - Oedema peripheral [Unknown]
  - Therapeutic product effect incomplete [Unknown]
  - Therapeutic product effect delayed [Unknown]
